FAERS Safety Report 17507730 (Version 1)
Quarter: 2020Q1

REPORT INFORMATION
  Report Type: Spontaneous
  Country: SK (occurrence: SK)
  Receive Date: 20200306
  Receipt Date: 20200306
  Transmission Date: 20200409
  Serious: Yes (Life-Threatening, Hospitalization, Other)
  Sender: FDA-Public Use
  Company Number: SK-AMGEN-SVKSP2020036584

PATIENT
  Age: 72 Year
  Sex: Female

DRUGS (1)
  1. ENBREL [Suspect]
     Active Substance: ETANERCEPT
     Indication: RHEUMATOID ARTHRITIS
     Dosage: UNK
     Route: 065

REACTIONS (5)
  - Enterocolitis bacterial [Recovering/Resolving]
  - Sepsis [Recovering/Resolving]
  - Dermatitis bullous [Recovering/Resolving]
  - Intervertebral discitis [Recovering/Resolving]
  - Abscess [Recovering/Resolving]
